FAERS Safety Report 13553691 (Version 1)
Quarter: 2017Q2

REPORT INFORMATION
  Report Type: Spontaneous
  Country: NO (occurrence: NO)
  Receive Date: 20170517
  Receipt Date: 20170517
  Transmission Date: 20170830
  Serious: Yes (Life-Threatening)
  Sender: FDA-Public Use
  Company Number: NO-BIOVITRUM-2017NO0462

PATIENT
  Age: 17 Year
  Sex: Female

DRUGS (11)
  1. ROACTEMRA [Suspect]
     Active Substance: TOCILIZUMAB
     Indication: JUVENILE IDIOPATHIC ARTHRITIS
     Route: 042
     Dates: start: 201003, end: 201504
  2. ORENCIA [Suspect]
     Active Substance: ABATACEPT
     Indication: JUVENILE IDIOPATHIC ARTHRITIS
     Dates: start: 200904, end: 201003
  3. METHOTREXATE. [Concomitant]
     Active Substance: METHOTREXATE
     Dosage: USED IN PERIODES
     Dates: start: 2000
  4. HUMIRA [Suspect]
     Active Substance: ADALIMUMAB
     Indication: JUVENILE IDIOPATHIC ARTHRITIS
     Dates: start: 2006
  5. GENOTROPIN [Concomitant]
     Active Substance: SOMATROPIN
  6. SANDIMMUN [Concomitant]
     Active Substance: CYCLOSPORINE
     Dates: start: 2001
  7. ROACTEMRA [Suspect]
     Active Substance: TOCILIZUMAB
     Indication: JUVENILE IDIOPATHIC ARTHRITIS
     Route: 058
     Dates: start: 201602, end: 201603
  8. PREDNISOLONE. [Concomitant]
     Active Substance: PREDNISOLONE
     Dates: start: 1999
  9. KINERET [Suspect]
     Active Substance: ANAKINRA
     Indication: JUVENILE IDIOPATHIC ARTHRITIS
     Dates: start: 2006
  10. ENBREL [Suspect]
     Active Substance: ETANERCEPT
     Indication: JUVENILE IDIOPATHIC ARTHRITIS
     Dates: start: 200112, end: 2003
  11. REMICADE [Suspect]
     Active Substance: INFLIXIMAB
     Indication: JUVENILE IDIOPATHIC ARTHRITIS
     Dates: start: 2004

REACTIONS (1)
  - Squamous cell carcinoma of the oral cavity [Recovering/Resolving]

NARRATIVE: CASE EVENT DATE: 201609
